FAERS Safety Report 10688046 (Version 1)
Quarter: 2015Q1

REPORT INFORMATION
  Report Type: Spontaneous
  Country: IT (occurrence: IT)
  Receive Date: 20150102
  Receipt Date: 20150102
  Transmission Date: 20150720
  Serious: Yes (Hospitalization)
  Sender: FDA-Public Use
  Company Number: IT-BAYER-2014-190949

PATIENT
  Age: 50 Year
  Sex: Female

DRUGS (3)
  1. PARACETAMOL [Suspect]
     Active Substance: ACETAMINOPHEN
     Dosage: 10 G, ONCE
     Route: 048
     Dates: start: 20141224, end: 20141224
  2. LAMICTAL [Suspect]
     Active Substance: LAMOTRIGINE
     Dosage: 600 MG, ONCE
     Route: 048
     Dates: start: 20141224, end: 20141224
  3. ASPIRINA [Suspect]
     Active Substance: ASPIRIN
     Dosage: 5 G, ONCE
     Route: 048
     Dates: start: 20141224, end: 20141224

REACTIONS (1)
  - Poisoning [Unknown]

NARRATIVE: CASE EVENT DATE: 20141224
